FAERS Safety Report 8319540-8 (Version None)
Quarter: 2012Q2

REPORT INFORMATION
  Report Type: 
  Country: None (occurrence: None)
  Receive Date: 20120427
  Receipt Date: 20120418
  Transmission Date: 20120825
  Serious: Yes (Other)
  Sender: FDA-Public Use
  Company Number: JP-VALEANT-2012VX001853

PATIENT
  Age: 74 Year
  Sex: Male

DRUGS (4)
  1. DOCETAXEL [Suspect]
     Indication: GASTRIC CANCER
     Dosage: DOSE UNIT:60
     Route: 065
     Dates: start: 20091201, end: 20100101
  2. SOLUTIONS FOR PARENTERAL NUTRITION [Concomitant]
     Route: 065
  3. CISPLATIN [Suspect]
     Indication: GASTRIC CANCER
     Dosage: DOSE UNIT:60
     Route: 065
     Dates: start: 20091201, end: 20100101
  4. FLUOROURACIL [Suspect]
     Indication: GASTRIC CANCER
     Dosage: DOSE UNIT:600
     Route: 065
     Dates: start: 20091201, end: 20100101

REACTIONS (4)
  - SCAR [None]
  - DIARRHOEA [None]
  - PNEUMONIA [None]
  - FEBRILE NEUTROPENIA [None]
